FAERS Safety Report 24048461 (Version 6)
Quarter: 2024Q4

REPORT INFORMATION
  Report Type: Spontaneous
  Country: IL (occurrence: IL)
  Receive Date: 20240704
  Receipt Date: 20241206
  Transmission Date: 20250114
  Serious: Yes (Other)
  Sender: BLUEPRINT MEDICINES
  Company Number: IL-Neopharm Limited-SP-IL-2024-001322

PATIENT
  Age: 46 Year
  Sex: Female

DRUGS (8)
  1. AYVAKIT [Suspect]
     Active Substance: AVAPRITINIB
     Indication: Gastrointestinal stromal tumour
     Route: 048
     Dates: start: 20240614, end: 20240627
  2. AYVAKIT [Suspect]
     Active Substance: AVAPRITINIB
     Indication: Gastrointestinal stromal tumour
     Route: 065
     Dates: start: 202406
  3. AYVAKIT [Suspect]
     Active Substance: AVAPRITINIB
     Route: 065
  4. AYVAKIT [Suspect]
     Active Substance: AVAPRITINIB
     Route: 065
     Dates: start: 20240721, end: 20240725
  5. AYVAKIT [Suspect]
     Active Substance: AVAPRITINIB
     Route: 065
     Dates: start: 20240726
  6. AYVAKIT [Suspect]
     Active Substance: AVAPRITINIB
     Route: 065
     Dates: end: 202408
  7. AYVAKIT [Suspect]
     Active Substance: AVAPRITINIB
     Dosage: (DIVIDED TABLETS)
     Route: 065
  8. AYVAKIT [Suspect]
     Active Substance: AVAPRITINIB
     Route: 065

REACTIONS (8)
  - Weight increased [Not Recovered/Not Resolved]
  - Generalised oedema [Not Recovered/Not Resolved]
  - Lacrimation increased [Recovered/Resolved]
  - Swelling [Unknown]
  - Blood creatinine increased [Unknown]
  - Face oedema [Recovered/Resolved]
  - Intentional product misuse [Unknown]
  - Wrong technique in product usage process [Unknown]

NARRATIVE: CASE EVENT DATE: 20240601
